FAERS Safety Report 18323698 (Version 2)
Quarter: 2020Q4

REPORT INFORMATION
  Report Type: Spontaneous
  Country: US (occurrence: US)
  Receive Date: 20200928
  Receipt Date: 20201005
  Transmission Date: 20210113
  Serious: Yes (Hospitalization)
  Sender: FDA-Public Use
  Company Number: US-GW PHARMA-202009USGW03231

PATIENT

DRUGS (4)
  1. TOPAMAX [Suspect]
     Active Substance: TOPIRAMATE
     Indication: PRODUCT USED FOR UNKNOWN INDICATION
     Dosage: UNK
     Route: 065
  2. EPIDIOLEX [Suspect]
     Active Substance: CANNABIDIOL
     Indication: PRODUCT USED FOR UNKNOWN INDICATION
     Dosage: 140 MILLIGRAM, BID
     Route: 048
     Dates: start: 201908, end: 202009
  3. EPIDIOLEX [Suspect]
     Active Substance: CANNABIDIOL
     Dosage: DOSE INCREASED, UNK
     Route: 048
     Dates: start: 202009
  4. TOPAMAX [Suspect]
     Active Substance: TOPIRAMATE
     Dosage: WEANED OFF
     Dates: end: 2020

REACTIONS (2)
  - Seizure [Unknown]
  - Urine abnormality [Unknown]

NARRATIVE: CASE EVENT DATE: 20200915
